FAERS Safety Report 9365176 (Version 2)
Quarter: 2013Q3

REPORT INFORMATION
  Report Type: Report from Study
  Country: US (occurrence: US)
  Receive Date: 20130624
  Receipt Date: 20130829
  Transmission Date: 20140515
  Serious: Yes (Death, Hospitalization)
  Sender: FDA-Public Use
  Company Number: GXBR2013US001267

PATIENT
  Age: 66 Year
  Sex: Male

DRUGS (2)
  1. ENOXAPARIN SODIUM [Suspect]
     Indication: PULMONARY EMBOLISM
     Dosage: 150 MG, QD
     Route: 058
     Dates: start: 201304
  2. CHEMOTHERAPEUTICS NOS [Suspect]
     Indication: LUNG NEOPLASM MALIGNANT
     Dosage: UNK DF, UNK

REACTIONS (5)
  - Death [Fatal]
  - Oxygen saturation decreased [Unknown]
  - Pyrexia [Unknown]
  - Gastric haemorrhage [Unknown]
  - Pulmonary haemorrhage [Unknown]
